FAERS Safety Report 20869666 (Version 2)
Quarter: 2022Q4

REPORT INFORMATION
  Report Type: Spontaneous
  Country: FR (occurrence: None)
  Receive Date: 20220525
  Receipt Date: 20221129
  Transmission Date: 20230113
  Serious: Yes (Death, Hospitalization, Other)
  Sender: FDA-Public Use
  Company Number: FR-Unichem Pharmaceuticals (USA) Inc-UCM202205-000450

PATIENT
  Age: 32 Year
  Sex: Female

DRUGS (4)
  1. TRAMADOL HCL [Suspect]
     Active Substance: TRAMADOL HYDROCHLORIDE
     Indication: Product used for unknown indication
     Dosage: SELF-INGESTED 9000 MG
     Route: 048
  2. AMITRIPTYLINE [Concomitant]
     Active Substance: AMITRIPTYLINE
     Indication: Depression
     Dosage: UNKNOWN
  3. LORMETAZEPAM [Concomitant]
     Active Substance: LORMETAZEPAM
     Indication: Depression
     Dosage: UNKNOWN
  4. GABAPENTIN [Concomitant]
     Active Substance: GABAPENTIN
     Indication: Depression
     Dosage: UNKNOWN

REACTIONS (9)
  - Brain death [Fatal]
  - Brain injury [Fatal]
  - Encephalopathy [Fatal]
  - Eyelid myoclonus [Fatal]
  - Pneumonia [Fatal]
  - Neurotoxicity [Fatal]
  - Coma [Fatal]
  - Mydriasis [Fatal]
  - Overdose [Fatal]
